FAERS Safety Report 19823904 (Version 2)
Quarter: 2025Q1

REPORT INFORMATION
  Report Type: Spontaneous
  Country: ES (occurrence: ES)
  Receive Date: 20210913
  Receipt Date: 20250310
  Transmission Date: 20250409
  Serious: Yes (Other)
  Sender: MYLAN
  Company Number: ES-SUN PHARMACEUTICAL INDUSTRIES LTD-2015RR-97138

PATIENT

DRUGS (2)
  1. IMATINIB [Suspect]
     Active Substance: IMATINIB
     Indication: Chronic myeloid leukaemia
  2. DASATINIB [Suspect]
     Active Substance: DASATINIB
     Indication: Ischaemic cardiomyopathy

REACTIONS (3)
  - Ischaemic cardiomyopathy [Unknown]
  - Pleural effusion [Unknown]
  - Drug ineffective [Unknown]
